FAERS Safety Report 9195024 (Version 1)
Quarter: 2013Q1

REPORT INFORMATION
  Report Type: Spontaneous
  Country: US (occurrence: US)
  Receive Date: 20130328
  Receipt Date: 20130328
  Transmission Date: 20140127
  Serious: No
  Sender: FDA-Public Use
  Company Number: US-ALLERGAN-1216040US

PATIENT
  Age: 48 Year
  Sex: Female

DRUGS (2)
  1. LATISSE 0.03% [Suspect]
     Indication: GROWTH OF EYELASHES
     Dosage: 4 GTT, QOD
     Route: 061
     Dates: start: 201209, end: 201211
  2. LATISSE 0.03% [Suspect]
     Dosage: 4 GTT, QHS
     Route: 061
     Dates: start: 201208, end: 201209

REACTIONS (4)
  - Inappropriate schedule of drug administration [Unknown]
  - Incorrect dose administered [Unknown]
  - Visual acuity reduced [Unknown]
  - Vision blurred [Recovered/Resolved]
